FAERS Safety Report 8594812-0 (Version None)
Quarter: 2012Q3

REPORT INFORMATION
  Report Type: 
  Country: None (occurrence: None)
  Receive Date: 20120815
  Receipt Date: 20120807
  Transmission Date: 20120928
  Serious: Yes (Hospitalization, Other)
  Sender: FDA-Public Use
  Company Number: US-BAYER-2012-011572

PATIENT
  Age: 26 Year
  Sex: Female
  Weight: 108.84 kg

DRUGS (10)
  1. YAZ [Suspect]
     Dosage: UNK
     Dates: start: 20090406, end: 20091001
  2. YAZ [Suspect]
     Dosage: UNK
     Dates: start: 20080101, end: 20080101
  3. ANTI-ASTHMATICS [Concomitant]
     Dosage: UNK
     Dates: start: 20050101
  4. YAZ [Suspect]
     Dosage: UNK
     Dates: start: 20090717, end: 20091017
  5. IBUPROFEN [Concomitant]
  6. LISINOPRIL [Concomitant]
     Dosage: UNK
     Dates: start: 20080101
  7. YASMIN [Suspect]
     Dosage: UNK
     Dates: start: 20080101, end: 20080101
  8. YASMIN [Suspect]
  9. THYROID PREPARATIONS [Concomitant]
     Dosage: UNK
     Dates: start: 20080101
  10. YASMIN [Suspect]
     Dosage: UNK
     Dates: start: 20090406, end: 20091001

REACTIONS (6)
  - GALLBLADDER INJURY [None]
  - ABDOMINAL PAIN [None]
  - BILIARY DYSKINESIA [None]
  - EMOTIONAL DISTRESS [None]
  - GENERAL PHYSICAL HEALTH DETERIORATION [None]
  - ANXIETY [None]
